FAERS Safety Report 5697162-5 (Version None)
Quarter: 2008Q2

REPORT INFORMATION
  Report Type: 
  Country: None (occurrence: None)
  Receive Date: 20080408
  Receipt Date: 20070622
  Transmission Date: 20081010
  Serious: No
  Sender: FDA-Public Use
  Company Number: US-BAYER-US-2007-023372

PATIENT
  Sex: Female

DRUGS (1)
  1. YASMIN [Suspect]
     Route: 048
     Dates: start: 20061201

REACTIONS (4)
  - ABDOMINAL DISTENSION [None]
  - ANXIETY [None]
  - DEPRESSION [None]
  - WEIGHT INCREASED [None]
